FAERS Safety Report 10079161 (Version 2)
Quarter: 2014Q2

REPORT INFORMATION
  Report Type: Spontaneous
  Country: CN (occurrence: CN)
  Receive Date: 20140415
  Receipt Date: 20140421
  Transmission Date: 20141212
  Serious: Yes (Hospitalization)
  Sender: FDA-Public Use
  Company Number: CN-009507513-1404CHN006902

PATIENT
  Age: 27 Year
  Sex: Male
  Weight: 65 kg

DRUGS (2)
  1. TIENAM [Suspect]
     Indication: DRUG THERAPY
     Dosage: 2 G, QID, IV GTT
     Route: 042
     Dates: start: 20121030, end: 20121102
  2. OFLOXACIN [Concomitant]
     Indication: DRUG THERAPY
     Dosage: 0.5 G, QD,  IV GTT
     Route: 042
     Dates: start: 20121104, end: 20121105

REACTIONS (1)
  - Schizophrenia [Recovering/Resolving]
